FAERS Safety Report 12666828 (Version 27)
Quarter: 2023Q1

REPORT INFORMATION
  Report Type: Spontaneous
  Country: CA (occurrence: CA)
  Receive Date: 20160819
  Receipt Date: 20230307
  Transmission Date: 20230418
  Serious: Yes (Life-Threatening, Hospitalization, Other)
  Sender: FDA-Public Use
  Company Number: CA-BAUSCH-BL-2016-019424

PATIENT
  Age: 77 Year
  Sex: Female

DRUGS (48)
  1. NITROGLYCERIN [Suspect]
     Active Substance: NITROGLYCERIN
     Indication: Angina pectoris
     Dosage: 0.6 MG/H AT BEDTIME
     Route: 065
  2. NITROGLYCERIN [Suspect]
     Active Substance: NITROGLYCERIN
     Indication: Coronary artery disease
     Route: 065
  3. NITROGLYCERIN [Suspect]
     Active Substance: NITROGLYCERIN
     Indication: Chest pain
     Route: 061
  4. NITROGLYCERIN [Suspect]
     Active Substance: NITROGLYCERIN
     Route: 065
  5. NITROGLYCERIN [Suspect]
     Active Substance: NITROGLYCERIN
     Route: 065
  6. NITROGLYCERIN [Suspect]
     Active Substance: NITROGLYCERIN
     Route: 065
  7. NITROGLYCERIN [Suspect]
     Active Substance: NITROGLYCERIN
     Route: 065
  8. NITROGLYCERIN [Suspect]
     Active Substance: NITROGLYCERIN
     Route: 065
  9. ALBUTEROL [Suspect]
     Active Substance: ALBUTEROL
     Indication: Hypertension
     Dosage: 100 UG/PUFF, 2 PUFFS FOUR TIMES DAILY IF NEEDED
     Route: 065
  10. ALBUTEROL [Suspect]
     Active Substance: ALBUTEROL
     Indication: Coronary artery disease
     Route: 065
  11. ALBUTEROL [Suspect]
     Active Substance: ALBUTEROL
     Indication: Chest pain
     Route: 055
  12. ALBUTEROL [Suspect]
     Active Substance: ALBUTEROL
     Indication: Angina pectoris
     Route: 065
  13. ALBUTEROL [Suspect]
     Active Substance: ALBUTEROL
     Indication: Product used for unknown indication
     Route: 065
  14. ALBUTEROL [Suspect]
     Active Substance: ALBUTEROL
     Route: 065
  15. ALBUTEROL [Suspect]
     Active Substance: ALBUTEROL
     Route: 065
  16. ALBUTEROL [Suspect]
     Active Substance: ALBUTEROL
     Dosage: 100 UG/PUFF, 2 PUFFS FOUR TIMES DAILY IF NEEDED
     Route: 065
  17. ALBUTEROL [Suspect]
     Active Substance: ALBUTEROL
     Dosage: 100 UG/PUFF, 2 PUFFS FOUR TIMES DAILY IF NEEDED
     Route: 065
  18. DILTIAZEM [Interacting]
     Active Substance: DILTIAZEM
     Indication: Hypertension
     Route: 065
  19. DILTIAZEM [Interacting]
     Active Substance: DILTIAZEM
     Indication: Coronary artery disease
  20. DILTIAZEM [Interacting]
     Active Substance: DILTIAZEM
     Indication: Angina pectoris
  21. DILTIAZEM [Suspect]
     Active Substance: DILTIAZEM
     Indication: Angina pectoris
     Route: 065
  22. DILTIAZEM [Suspect]
     Active Substance: DILTIAZEM
     Indication: Chest pain
     Route: 065
  23. DILTIAZEM [Suspect]
     Active Substance: DILTIAZEM
     Indication: Angina unstable
     Route: 065
  24. DILTIAZEM [Suspect]
     Active Substance: DILTIAZEM
     Indication: Hypertension
  25. DILTIAZEM [Suspect]
     Active Substance: DILTIAZEM
     Indication: Coronary artery disease
  26. ALBUTEROL [Suspect]
     Active Substance: ALBUTEROL
     Indication: Chest pain
     Route: 065
  27. ALBUTEROL [Suspect]
     Active Substance: ALBUTEROL
     Indication: Angina pectoris
     Route: 065
  28. ALBUTEROL [Suspect]
     Active Substance: ALBUTEROL
     Route: 065
  29. ALBUTEROL [Suspect]
     Active Substance: ALBUTEROL
     Route: 065
  30. ALBUTEROL [Suspect]
     Active Substance: ALBUTEROL
     Route: 065
  31. ALBUTEROL [Suspect]
     Active Substance: ALBUTEROL
     Route: 065
  32. ALBUTEROL [Suspect]
     Active Substance: ALBUTEROL
     Route: 065
  33. ALBUTEROL [Suspect]
     Active Substance: ALBUTEROL
     Route: 065
  34. DILTIAZEM HYDROCHLORIDE [Suspect]
     Active Substance: DILTIAZEM HYDROCHLORIDE
     Indication: Chest pain
     Route: 065
  35. DILTIAZEM HYDROCHLORIDE [Suspect]
     Active Substance: DILTIAZEM HYDROCHLORIDE
     Indication: Angina pectoris
     Route: 065
  36. DILTIAZEM HYDROCHLORIDE [Suspect]
     Active Substance: DILTIAZEM HYDROCHLORIDE
     Indication: Hypertension
     Route: 065
  37. DILTIAZEM HYDROCHLORIDE [Suspect]
     Active Substance: DILTIAZEM HYDROCHLORIDE
     Indication: Coronary artery disease
     Route: 065
  38. DILTIAZEM HYDROCHLORIDE [Suspect]
     Active Substance: DILTIAZEM HYDROCHLORIDE
     Route: 065
  39. DILTIAZEM HYDROCHLORIDE [Suspect]
     Active Substance: DILTIAZEM HYDROCHLORIDE
     Route: 065
  40. NITROGLYCERIN [Suspect]
     Active Substance: NITROGLYCERIN
     Indication: Chest pain
     Route: 065
  41. NITROGLYCERIN [Suspect]
     Active Substance: NITROGLYCERIN
     Indication: Angina pectoris
     Route: 061
  42. NITROGLYCERIN [Suspect]
     Active Substance: NITROGLYCERIN
     Indication: Hypertension
     Route: 065
  43. NITROGLYCERIN [Suspect]
     Active Substance: NITROGLYCERIN
     Indication: Coronary artery disease
     Route: 065
  44. NITROGLYCERIN [Suspect]
     Active Substance: NITROGLYCERIN
     Route: 065
  45. NITROGLYCERIN [Suspect]
     Active Substance: NITROGLYCERIN
     Route: 065
  46. NITROGLYCERIN [Suspect]
     Active Substance: NITROGLYCERIN
     Route: 065
  47. NITROGLYCERIN [Suspect]
     Active Substance: NITROGLYCERIN
     Route: 065
  48. DIASTAT [Suspect]
     Active Substance: DIAZEPAM
     Indication: Insomnia
     Route: 065

REACTIONS (20)
  - Cognitive disorder [Recovered/Resolved]
  - Sedation complication [Recovered/Resolved]
  - Multiple drug therapy [Recovered/Resolved]
  - Dyspnoea [Recovered/Resolved]
  - Drug interaction [Recovered/Resolved]
  - Balance disorder [Recovered/Resolved]
  - Blood calcium decreased [Recovered/Resolved]
  - Creatinine renal clearance decreased [Recovered/Resolved]
  - Depressed level of consciousness [Recovered/Resolved]
  - Mobility decreased [Recovered/Resolved]
  - Pain [Recovered/Resolved]
  - Sedation [Recovered/Resolved]
  - Toxicity to various agents [Recovered/Resolved]
  - Renal function test abnormal [Recovered/Resolved]
  - Constipation [Recovered/Resolved]
  - Drug abuse [Recovered/Resolved]
  - Fall [Recovered/Resolved]
  - Hypotension [Recovered/Resolved]
  - Orthostatic hypotension [Recovered/Resolved]
  - Overdose [Recovered/Resolved]
